FAERS Safety Report 5806587-6 (Version None)
Quarter: 2008Q3

REPORT INFORMATION
  Report Type: 
  Country: None (occurrence: None)
  Receive Date: 20080710
  Receipt Date: 20080630
  Transmission Date: 20090109
  Serious: Yes (Other)
  Sender: FDA-Public Use
  Company Number: PHHY2008FR12863

PATIENT
  Sex: Female

DRUGS (4)
  1. TEGRETOL [Suspect]
     Route: 064
  2. SABRIL [Suspect]
     Route: 064
  3. GABAPENTIN [Suspect]
     Route: 064
  4. URBANYL [Suspect]
     Route: 064

REACTIONS (2)
  - DRUG EXPOSURE DURING PREGNANCY [None]
  - PREMATURE LABOUR [None]
